FAERS Safety Report 17677757 (Version 4)
Quarter: 2020Q3

REPORT INFORMATION
  Report Type: Spontaneous
  Country: FR (occurrence: FR)
  Receive Date: 20200416
  Receipt Date: 20200831
  Transmission Date: 20201102
  Serious: Yes (Other)
  Sender: FDA-Public Use
  Company Number: FR-ELI_LILLY_AND_COMPANY-PL202004003568

PATIENT
  Age: 78 Year
  Sex: Female
  Weight: 58 kg

DRUGS (4)
  1. HYDROCORTISONE. [Suspect]
     Active Substance: HYDROCORTISONE
     Indication: ADDISON^S DISEASE
  2. OLUMIANT [Suspect]
     Active Substance: BARICITINIB
     Dosage: 2 UNK
     Route: 065
  3. HYDROCORTISONE. [Suspect]
     Active Substance: HYDROCORTISONE
     Indication: RHEUMATOID ARTHRITIS
     Dosage: 33 MG, EACH MORNING
     Route: 065
  4. OLUMIANT [Suspect]
     Active Substance: BARICITINIB
     Indication: RHEUMATOID ARTHRITIS
     Dosage: 4 MG, EACH MORNING
     Route: 065
     Dates: start: 202001, end: 202004

REACTIONS (15)
  - Vasodilatation [Unknown]
  - Malaise [Not Recovered/Not Resolved]
  - Skin atrophy [Not Recovered/Not Resolved]
  - Toothache [Not Recovered/Not Resolved]
  - Anxiety [Not Recovered/Not Resolved]
  - Varicose vein [Not Recovered/Not Resolved]
  - Peripheral swelling [Not Recovered/Not Resolved]
  - Headache [Not Recovered/Not Resolved]
  - Haematochezia [Recovered/Resolved]
  - Gingival pain [Not Recovered/Not Resolved]
  - Haematuria [Recovered/Resolved]
  - Gamma-glutamyltransferase increased [Unknown]
  - Increased appetite [Not Recovered/Not Resolved]
  - Swelling face [Not Recovered/Not Resolved]
  - Drug ineffective [Recovered/Resolved]

NARRATIVE: CASE EVENT DATE: 20200416
